FAERS Safety Report 6265484-5 (Version None)
Quarter: 2009Q3

REPORT INFORMATION
  Report Type: 
  Country: None (occurrence: None)
  Receive Date: 20090713
  Receipt Date: 20090706
  Transmission Date: 20100115
  Serious: Yes (Other)
  Sender: FDA-Public Use
  Company Number: PHHO2008DE12553

PATIENT
  Sex: Female

DRUGS (5)
  1. ZOLEDRONIC ACID [Suspect]
     Indication: BREAST CANCER
     Dosage: 4MG
     Route: 042
     Dates: start: 20080123
  2. CALCIUM [Concomitant]
  3. VITAMIN D [Concomitant]
  4. MAGNESIUM SULFATE [Concomitant]
  5. HERCEPTIN [Concomitant]

REACTIONS (8)
  - GINGIVAL INFECTION [None]
  - INFLAMMATION [None]
  - JAW OPERATION [None]
  - OROANTRAL FISTULA [None]
  - OSTEONECROSIS [None]
  - RHINORRHOEA [None]
  - SINUS DISORDER [None]
  - TOOTH EXTRACTION [None]
